FAERS Safety Report 6421754-9 (Version None)
Quarter: 2009Q4

REPORT INFORMATION
  Report Type: 
  Country: None (occurrence: None)
  Receive Date: 20091029
  Receipt Date: 20091029
  Transmission Date: 20100525
  Serious: Yes (Hospitalization)
  Sender: FDA-Public Use
  Company Number: None

PATIENT
  Age: 73 Year
  Sex: Male

DRUGS (3)
  1. ATENOLOL [Suspect]
     Indication: CORONARY ARTERY DISEASE
     Dosage: 25 MG EVERY DAY PO
     Route: 048
     Dates: start: 20060315, end: 20091022
  2. ATENOLOL [Suspect]
     Indication: HYPERTENSION
     Dosage: 25 MG EVERY DAY PO
     Route: 048
     Dates: start: 20060315, end: 20091022
  3. TERAZOSIN HCL [Suspect]
     Indication: BENIGN PROSTATIC HYPERPLASIA
     Dosage: 5 MG AT BEDTIME PO
     Route: 048
     Dates: start: 20071205, end: 20091022

REACTIONS (2)
  - BRADYCARDIA [None]
  - SYNCOPE [None]
